FAERS Safety Report 24126202 (Version 2)
Quarter: 2024Q3

REPORT INFORMATION
  Report Type: Spontaneous
  Country: US (occurrence: None)
  Receive Date: 20240723
  Receipt Date: 20240827
  Transmission Date: 20241017
  Serious: Yes (Hospitalization)
  Sender: ASTRAZENECA
  Company Number: 2024A161471

PATIENT
  Sex: Female

DRUGS (1)
  1. BUDESONIDE\FORMOTEROL [Suspect]
     Active Substance: BUDESONIDE\FORMOTEROL
     Dosage: 120 INHALATIONS UNKNOWN
     Route: 055

REACTIONS (8)
  - Ill-defined disorder [Unknown]
  - Drug ineffective [Unknown]
  - Lung disorder [Unknown]
  - Dyspnoea [Unknown]
  - Device defective [Unknown]
  - Product use issue [Unknown]
  - Incorrect dose administered by device [Unknown]
  - Wrong technique in device usage process [Unknown]
